FAERS Safety Report 12991527 (Version 1)
Quarter: 2016Q4

REPORT INFORMATION
  Report Type: Spontaneous
  Country: US (occurrence: US)
  Receive Date: 20161201
  Receipt Date: 20161201
  Transmission Date: 20170207
  Serious: No
  Sender: FDA-Public Use
  Company Number: US-ENDO PHARMACEUTICALS INC.-2016-004475

PATIENT
  Sex: Male

DRUGS (1)
  1. ALPRAZOLAM TABLETS 2 MG [Suspect]
     Active Substance: ALPRAZOLAM
     Indication: PRODUCT USED FOR UNKNOWN INDICATION
     Route: 065

REACTIONS (5)
  - Seasonal allergy [Unknown]
  - Unevaluable event [Unknown]
  - Withdrawal syndrome [Unknown]
  - Nasopharyngitis [Unknown]
  - Drug effect decreased [Unknown]
